FAERS Safety Report 15587065 (Version 6)
Quarter: 2020Q3

REPORT INFORMATION
  Report Type: Report from Study
  Country: DE (occurrence: DE)
  Receive Date: 20181105
  Receipt Date: 20200922
  Transmission Date: 20201102
  Serious: Yes (Hospitalization)
  Sender: FDA-Public Use
  Company Number: DE-PFIZER INC-2018443521

PATIENT
  Age: 51 Year
  Sex: Female
  Weight: 69 kg

DRUGS (6)
  1. XELJANZ [Suspect]
     Active Substance: TOFACITINIB CITRATE
     Indication: RHEUMATOID ARTHRITIS
     Dosage: 5 MG, TWICE DAILY (1?0?1)
     Dates: start: 20181016, end: 20181204
  2. GABRILEN [Concomitant]
     Indication: PAIN
  3. METEX [METHOTREXATE SODIUM] [Suspect]
     Active Substance: METHOTREXATE SODIUM
     Indication: RHEUMATOID ARTHRITIS
     Dosage: 15 MG, 1X WEEKLY
     Route: 048
     Dates: start: 20180626, end: 20181204
  4. RUBIFOL [Concomitant]
     Indication: PROPHYLAXIS
     Dosage: UNK
     Route: 048
     Dates: start: 20160315
  5. DESIRETT [Suspect]
     Active Substance: DESOGESTREL
     Dosage: 75 MG, 1X/DAY
     Route: 048
     Dates: start: 2016, end: 20181024
  6. GABRILEN [Concomitant]
     Indication: RHEUMATOID ARTHRITIS
     Dosage: UNK
     Route: 048
     Dates: start: 20161122

REACTIONS (2)
  - Deep vein thrombosis [Recovered/Resolved]
  - Pulmonary embolism [Recovered/Resolved]

NARRATIVE: CASE EVENT DATE: 20181024
